FAERS Safety Report 6329214-0 (Version None)
Quarter: 2009Q3

REPORT INFORMATION
  Report Type: 
  Country: None (occurrence: None)
  Receive Date: 20090826
  Receipt Date: 20090818
  Transmission Date: 20100115
  Serious: Yes (Other)
  Sender: FDA-Public Use
  Company Number: US-JNJFOC-20090805937

PATIENT
  Sex: Female
  Weight: 60.33 kg

DRUGS (4)
  1. REMICADE [Suspect]
     Indication: PSORIATIC ARTHROPATHY
     Route: 042
  2. METHOTREXATE [Concomitant]
  3. MIRAPEX [Concomitant]
  4. FOLIC ACID [Concomitant]

REACTIONS (3)
  - CATARACT [None]
  - EYE INFLAMMATION [None]
  - MYODESOPSIA [None]
